FAERS Safety Report 11414144 (Version 1)
Quarter: 2015Q3

REPORT INFORMATION
  Report Type: Spontaneous
  Country: FR (occurrence: FR)
  Receive Date: 20150824
  Receipt Date: 20150824
  Transmission Date: 20151125
  Serious: Yes (Hospitalization)
  Sender: FDA-Public Use
  Company Number: FR-SA-2015SA125652

PATIENT
  Age: 72 Year
  Sex: Male

DRUGS (15)
  1. LANTUS [Suspect]
     Active Substance: INSULIN GLARGINE
     Indication: DIABETES MELLITUS
     Route: 058
     Dates: start: 20150717, end: 20150721
  2. CEFTRIAXONE. [Suspect]
     Active Substance: CEFTRIAXONE
     Indication: OSTEITIS
     Route: 042
     Dates: start: 20150626, end: 20150626
  3. RENAGEL [Concomitant]
     Active Substance: SEVELAMER HYDROCHLORIDE
     Route: 048
     Dates: start: 20150703
  4. HEPARIN [Suspect]
     Active Substance: HEPARIN SODIUM
     Route: 042
     Dates: start: 20150630, end: 20150630
  5. NERISONE [Concomitant]
     Active Substance: DIFLUCORTOLONE VALERATE
  6. ARANESP [Suspect]
     Active Substance: DARBEPOETIN ALFA
     Indication: NEPHROGENIC ANAEMIA
     Dosage: DOSE:1 UNIT(S)
     Route: 042
     Dates: start: 20150706, end: 20150720
  7. HEPARIN [Suspect]
     Active Substance: HEPARIN SODIUM
     Route: 042
     Dates: start: 20150706, end: 20150720
  8. AERIUS [Concomitant]
     Active Substance: DESLORATADINE
     Route: 048
  9. XATRAL [Suspect]
     Active Substance: ALFUZOSIN
     Indication: BENIGN PROSTATIC HYPERPLASIA
     Route: 048
     Dates: start: 20150702, end: 20150729
  10. CEFTRIAXONE. [Suspect]
     Active Substance: CEFTRIAXONE
     Indication: OSTEITIS
     Route: 042
     Dates: start: 20150630, end: 20150721
  11. OFLOXACIN. [Suspect]
     Active Substance: OFLOXACIN
     Route: 048
     Dates: start: 20150703, end: 20150721
  12. ESIDREX [Suspect]
     Active Substance: HYDROCHLOROTHIAZIDE
     Indication: OSTEITIS
     Route: 048
     Dates: start: 20150710, end: 20150727
  13. AMLODIPINE [Concomitant]
     Active Substance: AMLODIPINE BESYLATE
     Indication: HYPERTENSION
     Route: 048
     Dates: start: 20150630
  14. LASILIX [Concomitant]
     Active Substance: FUROSEMIDE
     Route: 048
  15. OROZAMUDOL [Concomitant]
     Active Substance: TRAMADOL
     Route: 048

REACTIONS (1)
  - Rash maculo-papular [Recovering/Resolving]

NARRATIVE: CASE EVENT DATE: 20150719
